FAERS Safety Report 18066416 (Version 1)
Quarter: 2020Q3

REPORT INFORMATION
  Report Type: Spontaneous
  Country: IT (occurrence: IT)
  Receive Date: 20200724
  Receipt Date: 20200724
  Transmission Date: 20201103
  Serious: Yes (Hospitalization)
  Sender: FDA-Public Use
  Company Number: IT-MYLANLABS-2020M1066010

PATIENT
  Age: 11 Year
  Sex: Female
  Weight: 28 kg

DRUGS (4)
  1. VORICONAZOLE. [Suspect]
     Active Substance: VORICONAZOLE
     Indication: FUSARIUM INFECTION
     Dosage: UNK
     Route: 042
     Dates: start: 20200609, end: 20200615
  2. MYCOPHENOLATE MOFETIL. [Concomitant]
     Active Substance: MYCOPHENOLATE MOFETIL
     Indication: HYPOGAMMAGLOBULINAEMIA
     Dosage: 8 MILLIGRAM/KILOGRAM
     Route: 048
     Dates: start: 20171001, end: 20200609
  3. LANSOPRAZOLE. [Concomitant]
     Active Substance: LANSOPRAZOLE
     Indication: HYPOGAMMAGLOBULINAEMIA
     Dosage: 1 MILLIGRAM/KILOGRAM
     Route: 048
     Dates: start: 20200603, end: 20200710
  4. AMPHOTERICIN B. [Suspect]
     Active Substance: AMPHOTERICIN B
     Indication: FUSARIUM INFECTION
     Dosage: 3 MILLIGRAM/KILOGRAM, QD
     Route: 042
     Dates: start: 20200609, end: 20200615

REACTIONS (5)
  - Pancytopenia [Recovered/Resolved]
  - Visual impairment [Recovered/Resolved]
  - Headache [Recovered/Resolved]
  - Procedural nausea [Recovered/Resolved]
  - Hypokalaemia [Recovered/Resolved]

NARRATIVE: CASE EVENT DATE: 20200612
